FAERS Safety Report 9278949 (Version 1)
Quarter: 2013Q2

REPORT INFORMATION
  Report Type: Spontaneous
  Country: US (occurrence: US)
  Receive Date: 20130508
  Receipt Date: 20130508
  Transmission Date: 20140414
  Serious: Yes (Hospitalization)
  Sender: FDA-Public Use
  Company Number: US-GLAXOSMITHKLINE-A1021866A

PATIENT
  Age: 59 Year
  Sex: Female

DRUGS (5)
  1. ADVAIR [Suspect]
     Indication: ASTHMA
     Dosage: 2PUFF TWICE PER DAY
     Route: 055
     Dates: start: 2008
  2. LISINOPRIL [Concomitant]
  3. IRON [Concomitant]
  4. OMEPRAZOLE [Concomitant]
  5. PROZAC [Concomitant]

REACTIONS (5)
  - Pneumonia [Recovering/Resolving]
  - Dyspnoea [Recovering/Resolving]
  - Oxygen saturation decreased [Recovering/Resolving]
  - Nasopharyngitis [Recovering/Resolving]
  - Bronchitis [Recovering/Resolving]
